FAERS Safety Report 20315020 (Version 1)
Quarter: 2022Q1

REPORT INFORMATION
  Report Type: Spontaneous
  Country: US (occurrence: None)
  Receive Date: 20220110
  Receipt Date: 20220110
  Transmission Date: 20220423
  Serious: No
  Sender: FDA-Public Use
  Company Number: US-ROCHE-2719399

PATIENT
  Age: 15 Year
  Sex: Female

DRUGS (3)
  1. RITUXAN [Suspect]
     Active Substance: RITUXIMAB
     Indication: Immune thrombocytopenia
     Dosage: ONGOING- YES
     Route: 065
     Dates: start: 202011
  2. PREDNISONE [Concomitant]
     Active Substance: PREDNISONE
  3. ELTROMBOPAG [Concomitant]
     Active Substance: ELTROMBOPAG

REACTIONS (5)
  - Platelet count abnormal [Unknown]
  - Pain in extremity [Not Recovered/Not Resolved]
  - Myalgia [Not Recovered/Not Resolved]
  - Intentional product use issue [Unknown]
  - Off label use [Unknown]

NARRATIVE: CASE EVENT DATE: 20201101
